FAERS Safety Report 5233577-7 (Version None)
Quarter: 2007Q1

REPORT INFORMATION
  Report Type: 
  Country: None (occurrence: None)
  Receive Date: 20070206
  Receipt Date: 20070108
  Transmission Date: 20070707
  Serious: Yes (Death, Hospitalization)
  Sender: FDA-Public Use
  Company Number: 232982

PATIENT
  Age: 54 Year
  Sex: Male
  Weight: 54.1 kg

DRUGS (7)
  1. BEVACIZUMAB OR PLACEBO (BEVACIZUMAB) PWDR + SOLVENT, INFUSION SOLN, 10 [Suspect]
     Indication: PANCREATIC CARCINOMA METASTATIC
     Dosage: 297 MG, Q2W, INTRAVENOUS
     Route: 042
     Dates: start: 20060406, end: 20061011
  2. ERLOTINIB(ERLOTINIB) TABLET, 100MG [Suspect]
     Indication: PANCREATIC CARCINOMA METASTATIC
     Dosage: 100 MG, QD, ORAL
     Route: 048
     Dates: start: 20060406, end: 20061202
  3. GEMCITABINE [Suspect]
     Indication: PANCREATIC CARCINOMA METASTATIC
     Dosage: 1660 MG, 1 WEEK, INTRAVENOUS
     Route: 042
     Dates: start: 20060406, end: 20061123
  4. LORAZEPAM [Concomitant]
  5. HALOPERIDOL [Concomitant]
  6. OMEPRAZOLE [Concomitant]
  7. NORVASC [Concomitant]

REACTIONS (4)
  - ANAEMIA [None]
  - BLOOD CHLORIDE DECREASED [None]
  - RENAL CYST [None]
  - RENAL FAILURE [None]
